FAERS Safety Report 5164905-9 (Version None)
Quarter: 2006Q4

REPORT INFORMATION
  Report Type: 
  Country: None (occurrence: None)
  Receive Date: 20061124
  Receipt Date: 20061120
  Transmission Date: 20070319
  Serious: Yes (Hospitalization)
  Sender: FDA-Public Use
  Company Number: 2006-05878

PATIENT
  Age: 24 Year
  Sex: Female

DRUGS (3)
  1. TRELSTAR DEPOT [Suspect]
     Indication: IN VITRO FERTILISATION
     Dosage: 3 MG, Q28 DAYS, INTRAMUSCULAR
     Route: 030
  2. GONADOTROPHINE-ENDO(CHORIONIC GONADOTROPHIN) [Suspect]
     Indication: IN VITRO FERTILISATION
     Dates: end: 20060930
  3. GONAL-F [Suspect]
     Indication: IN VITRO FERTILISATION

REACTIONS (21)
  - ABDOMINAL PAIN [None]
  - ASCITES [None]
  - BLOOD CREATININE INCREASED [None]
  - BLOOD PRESSURE DIASTOLIC INCREASED [None]
  - CONSTIPATION [None]
  - DIARRHOEA [None]
  - DRUG EXPOSURE DURING PREGNANCY [None]
  - DYSPNOEA [None]
  - GASTROINTESTINAL MOTILITY DISORDER [None]
  - HYPONATRAEMIA [None]
  - HYPOPROTEINAEMIA [None]
  - LEUKOCYTOSIS [None]
  - NAUSEA [None]
  - OLIGURIA [None]
  - OVARIAN ENLARGEMENT [None]
  - OVARIAN HYPERSTIMULATION SYNDROME [None]
  - PREGNANCY [None]
  - TACHYCARDIA [None]
  - THERAPY NON-RESPONDER [None]
  - VOMITING [None]
  - WEIGHT INCREASED [None]
